FAERS Safety Report 24620515 (Version 1)
Quarter: 2024Q4

REPORT INFORMATION
  Report Type: Report from Study
  Country: CO (occurrence: CO)
  Receive Date: 20241114
  Receipt Date: 20241114
  Transmission Date: 20250114
  Serious: Yes (Hospitalization, Other)
  Sender: BIOVITRUM
  Company Number: CO-AstraZeneca-CH-00736209A

PATIENT
  Age: 3 Month
  Sex: Female

DRUGS (1)
  1. PALIVIZUMAB [Suspect]
     Active Substance: PALIVIZUMAB
     Indication: Antiviral prophylaxis
     Dosage: MONTHLY
     Dates: start: 20240722

REACTIONS (2)
  - Nasal congestion [Unknown]
  - Respiratory distress [Unknown]

NARRATIVE: CASE EVENT DATE: 20241014
